FAERS Safety Report 18657556 (Version 1)
Quarter: 2020Q4

REPORT INFORMATION
  Report Type: Spontaneous
  Country: US (occurrence: US)
  Receive Date: 20201224
  Receipt Date: 20201224
  Transmission Date: 20210114
  Serious: No
  Sender: FDA-Public Use
  Company Number: US-009507513-2011USA016526

PATIENT
  Age: 26 Year
  Sex: Male

DRUGS (1)
  1. DECADRON [Suspect]
     Active Substance: DEXAMETHASONE
     Indication: INTRACRANIAL ANEURYSM
     Dosage: UNK
     Route: 048

REACTIONS (1)
  - Off label use [Unknown]
